FAERS Safety Report 18218310 (Version 1)
Quarter: 2020Q3

REPORT INFORMATION
  Report Type: Spontaneous
  Country: HR (occurrence: HR)
  Receive Date: 20200901
  Receipt Date: 20200901
  Transmission Date: 20201103
  Serious: Yes (Other)
  Sender: FDA-Public Use
  Company Number: HR-PFIZER INC-2020336879

PATIENT
  Sex: Female

DRUGS (3)
  1. OKSAZEPAM [Suspect]
     Active Substance: OXAZEPAM
     Dosage: 10 DF, 1X/DAY (DF=1 TABLET)
     Route: 048
     Dates: start: 20200722, end: 20200722
  2. RIVOTRIL [Suspect]
     Active Substance: CLONAZEPAM
     Dosage: 10 DF, 1X/DAY (DF=1 TABLET)
     Route: 048
     Dates: start: 20200722, end: 20200722
  3. LYRICA [Suspect]
     Active Substance: PREGABALIN
     Dosage: 5 DF, 1X/DAY
     Route: 048
     Dates: start: 20200722, end: 20200722

REACTIONS (3)
  - Somnolence [Unknown]
  - Intentional overdose [Unknown]
  - Suicide attempt [Unknown]

NARRATIVE: CASE EVENT DATE: 20200722
